FAERS Safety Report 7605543-5 (Version None)
Quarter: 2011Q3

REPORT INFORMATION
  Report Type: 
  Country: None (occurrence: None)
  Receive Date: 20110705
  Receipt Date: 20110620
  Transmission Date: 20111222
  Serious: Yes (Hospitalization)
  Sender: FDA-Public Use
  Company Number: DE-MEDIGENE-000368

PATIENT
  Age: 23 Year
  Sex: Female

DRUGS (2)
  1. VEREGEN [Suspect]
     Indication: ANOGENITAL WARTS
     Dosage: THREE TIMES DAILY; TOPICAL
     Route: 061
     Dates: start: 20110413, end: 20110429
  2. CONTRACEPTIVE PILL (INN:ORAL CONTRACEPTIVES NOS) [Concomitant]

REACTIONS (4)
  - GENITAL HERPES [None]
  - APPLICATION SITE ULCER [None]
  - GAIT DISTURBANCE [None]
  - APPLICATION SITE PAIN [None]
